FAERS Safety Report 15371922 (Version 1)
Quarter: 2018Q3

REPORT INFORMATION
  Report Type: Report from Study
  Country: NZ (occurrence: NZ)
  Receive Date: 20180911
  Receipt Date: 20180911
  Transmission Date: 20181010
  Serious: Yes (Other)
  Sender: FDA-Public Use
  Company Number: NZ-BAYER-2018-121524

PATIENT
  Age: 45 Year
  Sex: Female

DRUGS (2)
  1. CITALOPRAM [Suspect]
     Active Substance: CITALOPRAM HYDROBROMIDE
     Dosage: 20 MG, QD
     Route: 048
  2. MIRENA [Suspect]
     Active Substance: LEVONORGESTREL
     Indication: MENORRHAGIA
     Dosage: 20 MCG/24HR, CONT
     Route: 015
     Dates: start: 20180620

REACTIONS (6)
  - Complication of device insertion [None]
  - Syncope [Recovered/Resolved]
  - Uterine cervical pain [None]
  - Seizure [Recovered/Resolved]
  - Device deployment issue [None]
  - Dizziness [Recovered/Resolved]

NARRATIVE: CASE EVENT DATE: 20180620
